FAERS Safety Report 8896477 (Version 1)
Quarter: 2012Q4

REPORT INFORMATION
  Report Type: Spontaneous
  Country: CA (occurrence: None)
  Receive Date: 20121107
  Receipt Date: 20121107
  Transmission Date: 20130627
  Serious: No
  Sender: FDA-Public Use
  Company Number: None

PATIENT
  Age: 63 Year
  Sex: Female
  Weight: 89.81 kg

DRUGS (1)
  1. TOBRAMYCIN [Suspect]
     Dosage: 1/2 inch each eye   3x daily   Intraocular
     Route: 031
     Dates: start: 20121023, end: 20121030

REACTIONS (4)
  - Ocular hyperaemia [None]
  - Skin burning sensation [None]
  - Blister [None]
  - Pruritus [None]
